FAERS Safety Report 21481402 (Version 2)
Quarter: 2022Q4

REPORT INFORMATION
  Report Type: Spontaneous
  Country: JP (occurrence: JP)
  Receive Date: 20221019
  Receipt Date: 20221103
  Transmission Date: 20230113
  Serious: Yes (Other)
  Sender: FDA-Public Use
  Company Number: JP-NOVARTISPH-NVSJ2022JP099271

PATIENT
  Age: 57 Year
  Sex: Female

DRUGS (2)
  1. BEOVU [Suspect]
     Active Substance: BROLUCIZUMAB-DBLL
     Indication: Age-related macular degeneration
     Dosage: 6 MG
     Route: 031
     Dates: start: 20220929, end: 20220929
  2. BEOVU [Suspect]
     Active Substance: BROLUCIZUMAB-DBLL
     Dosage: 6 MG
     Route: 031
     Dates: start: 20221012, end: 20221012

REACTIONS (6)
  - Keratic precipitates [Recovered/Resolved]
  - Visual acuity reduced [Recovered/Resolved]
  - Eye inflammation [Recovered/Resolved]
  - Ocular hyperaemia [Recovered/Resolved]
  - Retinal perivascular sheathing [Recovered/Resolved]
  - Vitreous floaters [Unknown]

NARRATIVE: CASE EVENT DATE: 20221010
